FAERS Safety Report 8299197-5 (Version None)
Quarter: 2012Q2

REPORT INFORMATION
  Report Type: 
  Country: None (occurrence: None)
  Receive Date: 20120419
  Receipt Date: 20120412
  Transmission Date: 20120825
  Serious: Yes (Hospitalization, Other)
  Sender: FDA-Public Use
  Company Number: TW-ROXANE LABORATORIES, INC.-2012-RO-01058RO

PATIENT
  Age: 88 Year
  Sex: Female

DRUGS (1)
  1. DIGOXIN [Suspect]
     Indication: CARDIAC FAILURE
     Dosage: 0.25 MG

REACTIONS (5)
  - HYPERKALAEMIA [None]
  - RENAL FAILURE ACUTE [None]
  - HYPOTENSION [None]
  - TOXIC ENCEPHALOPATHY [None]
  - TOXICITY TO VARIOUS AGENTS [None]
